FAERS Safety Report 4542164-5 (Version None)
Quarter: 2004Q4

REPORT INFORMATION
  Report Type: 
  Country: None (occurrence: None)
  Receive Date: 20041227
  Receipt Date: 20041216
  Transmission Date: 20050328
  Serious: Yes (Hospitalization)
  Sender: FDA-Public Use
  Company Number: 2004UW25566

PATIENT
  Age: 56 Year
  Sex: Female
  Weight: 77.8 kg

DRUGS (8)
  1. GEFITINIB [Suspect]
     Indication: GLIOMA
     Dosage: 500 MG QD PO
     Route: 048
     Dates: start: 20041029, end: 20041209
  2. RAPAMUNE [Suspect]
     Indication: NEOPLASM RECURRENCE
     Dosage: 10 MG QD PO
     Route: 048
     Dates: start: 20041105, end: 20041209
  3. DECADRON [Concomitant]
  4. MAGIC MOUTHWASH WITH LIDOCAINE [Concomitant]
  5. PEPCID [Concomitant]
  6. AMOXICILLIN [Concomitant]
  7. LIDOCAINE AND NYSTATIN [Concomitant]
  8. CLORETAZINE INVESTIGATIONAL DRUG THERAPY [Concomitant]

REACTIONS (11)
  - DEHYDRATION [None]
  - DEPRESSED LEVEL OF CONSCIOUSNESS [None]
  - DIARRHOEA [None]
  - GLIOBLASTOMA MULTIFORME [None]
  - HYPONATRAEMIA [None]
  - IMPAIRED SELF-CARE [None]
  - LETHARGY [None]
  - LEUKOPENIA [None]
  - MALIGNANT NEOPLASM PROGRESSION [None]
  - MUCOSAL INFLAMMATION [None]
  - PNEUMONIA [None]
